FAERS Safety Report 5747368-1 (Version None)
Quarter: 2008Q2

REPORT INFORMATION
  Report Type: 
  Country: None (occurrence: None)
  Receive Date: 20080523
  Receipt Date: 20080212
  Transmission Date: 20081010
  Serious: No
  Sender: FDA-Public Use
  Company Number: US-BAYER-200814060NA

PATIENT
  Age: 31 Year
  Sex: Female
  Weight: 94 kg

DRUGS (1)
  1. MIRENA [Suspect]
     Indication: CONTRACEPTION
     Route: 015
     Dates: start: 20080121

REACTIONS (7)
  - DISCOMFORT [None]
  - FEELING ABNORMAL [None]
  - GENITAL HAEMORRHAGE [None]
  - IUCD COMPLICATION [None]
  - PYREXIA [None]
  - UTERINE PAIN [None]
  - UTERINE SPASM [None]
